FAERS Safety Report 22146596 (Version 1)
Quarter: 2023Q1

REPORT INFORMATION
  Report Type: Other
  Country: CA (occurrence: CA)
  Receive Date: 20230328
  Receipt Date: 20230328
  Transmission Date: 20230418
  Serious: Yes (Death, Other)
  Sender: FDA-Public Use
  Company Number: CA-PFIZER INC-202300128476

PATIENT

DRUGS (1)
  1. RITUXIMAB [Suspect]
     Active Substance: RITUXIMAB
     Indication: Non-Hodgkin^s lymphoma
     Dosage: UNK
     Route: 065

REACTIONS (14)
  - Acute graft versus host disease [Fatal]
  - Acute myeloid leukaemia recurrent [Fatal]
  - COVID-19 [Fatal]
  - Chloroma [Fatal]
  - Chronic graft versus host disease [Fatal]
  - Chronic graft versus host disease in eye [Fatal]
  - Chronic graft versus host disease in liver [Fatal]
  - Chronic graft versus host disease in lung [Fatal]
  - Chronic graft versus host disease in skin [Fatal]
  - Chronic graft versus host disease oral [Fatal]
  - Immunoglobulins decreased [Fatal]
  - Myelofibrosis [Fatal]
  - Non-Hodgkin^s lymphoma recurrent [Fatal]
  - Pneumonia [Fatal]
